FAERS Safety Report 4642052-X (Version None)
Quarter: 2005Q2

REPORT INFORMATION
  Report Type: 
  Country: None (occurrence: None)
  Receive Date: 20050421
  Receipt Date: 20050406
  Transmission Date: 20051028
  Serious: Yes (Life-Threatening, Hospitalization)
  Sender: FDA-Public Use
  Company Number: EWC050343068

PATIENT
  Age: 74 Year
  Sex: Female
  Weight: 77 kg

DRUGS (6)
  1. GEMZAR [Suspect]
     Indication: NON-SMALL CELL LUNG CANCER
     Dosage: 1000 MG/M2 3 OTHER
     Route: 042
     Dates: start: 20041228
  2. XANAX               (ALPRAZOLAM DUM) [Concomitant]
  3. ISOSORDIL              (ISOSORBIDE DINITRATE) [Concomitant]
  4. DOXABEN    (DOXAZOSIN MESILATE) [Concomitant]
  5. LASIX [Concomitant]
  6. DILTIAZEM [Concomitant]

REACTIONS (5)
  - CHILLS [None]
  - HYPERSENSITIVITY [None]
  - INFUSION RELATED REACTION [None]
  - RESPIRATORY DISTRESS [None]
  - TACHYCARDIA [None]
